FAERS Safety Report 5213212-4 (Version None)
Quarter: 2007Q1

REPORT INFORMATION
  Report Type: 
  Country: None (occurrence: None)
  Receive Date: 20070119
  Receipt Date: 20070119
  Transmission Date: 20070707
  Serious: Yes (Hospitalization)
  Sender: FDA-Public Use
  Company Number: DE-GLAXOSMITHKLINE-D0051780A

PATIENT
  Age: 62 Year
  Sex: Male
  Weight: 95 kg

DRUGS (4)
  1. LAMICTAL [Suspect]
     Indication: BIPOLAR DISORDER
     Dosage: 100MG PER DAY
     Route: 048
     Dates: start: 20040101, end: 20061213
  2. NON STEROIDAL ANTI-INFLAMMATORY DRUGS [Suspect]
     Route: 065
     Dates: start: 20061204, end: 20061208
  3. CORTISONE ACETATE [Suspect]
     Route: 030
     Dates: start: 20061204, end: 20061208
  4. DOLANTIN [Concomitant]
     Indication: PAIN
     Dosage: 40DROP THREE TIMES PER DAY
     Route: 048
     Dates: start: 20060120

REACTIONS (4)
  - MONOPLEGIA [None]
  - PURULENT DISCHARGE [None]
  - SPINAL COLUMN STENOSIS [None]
  - SUBCUTANEOUS ABSCESS [None]
